FAERS Safety Report 6086041-X (Version None)
Quarter: 2009Q1

REPORT INFORMATION
  Report Type: 
  Country: None (occurrence: None)
  Receive Date: 20090217
  Receipt Date: 20081030
  Transmission Date: 20090719
  Serious: Yes (Other)
  Sender: FDA-Public Use
  Company Number: MC200800515

PATIENT
  Age: 74 Year
  Sex: Male

DRUGS (4)
  1. ANGIOMAX [Suspect]
     Indication: PERCUTANEOUS CORONARY INTERVENTION
     Dosage: INTRAVENOUS
     Route: 042
     Dates: start: 20081030, end: 20081030
  2. ANGIOMAX [Suspect]
     Indication: STENT PLACEMENT
     Dosage: INTRAVENOUS
     Route: 042
     Dates: start: 20081030, end: 20081030
  3. PLAVIX [Concomitant]
  4. ASPIRIN [Concomitant]

REACTIONS (2)
  - ANGINA PECTORIS [None]
  - COAGULATION TIME ABNORMAL [None]
